FAERS Safety Report 4592236-4 (Version None)
Quarter: 2005Q1

REPORT INFORMATION
  Report Type: 
  Country: None (occurrence: None)
  Receive Date: 20050228
  Receipt Date: 20041020
  Transmission Date: 20050727
  Serious: Yes (Hospitalization)
  Sender: FDA-Public Use
  Company Number: US-BRISTOL-MYERS SQUIBB COMPANY-12740130

PATIENT
  Age: 11 Year
  Sex: Male

DRUGS (2)
  1. ABILIFY [Suspect]
     Indication: BIPOLAR DISORDER
     Route: 048
     Dates: start: 20040501
  2. LEXAPRO [Concomitant]
     Dosage: DECREASED TO 5 MG/DAY ^RECENTLY^
     Dates: start: 20040801

REACTIONS (3)
  - NO ADVERSE EFFECT [None]
  - OVERDOSE [None]
  - SUICIDE ATTEMPT [None]
